FAERS Safety Report 23686507 (Version 1)
Quarter: 2024Q1

REPORT INFORMATION
  Report Type: Spontaneous
  Country: US (occurrence: US)
  Receive Date: 20240329
  Receipt Date: 20240329
  Transmission Date: 20240410
  Serious: No
  Sender: FDA-Public Use
  Company Number: US-Eisai-EC-2024-158335

PATIENT
  Age: 75 Year
  Sex: Female
  Weight: 119 kg

DRUGS (5)
  1. LEQEMBI [Suspect]
     Active Substance: LECANEMAB-IRMB
     Indication: Product used for unknown indication
     Dosage: DOSE UNKNOWN
     Route: 042
     Dates: start: 20240123
  2. BENADRYL [Suspect]
     Active Substance: DIPHENHYDRAMINE HYDROCHLORIDE
     Indication: Prophylaxis
     Dosage: DOSE AND FREQUENCY UNKNOWN
     Route: 065
     Dates: start: 20240124
  3. TYLENOL [Concomitant]
     Active Substance: ACETAMINOPHEN
  4. LEVOTHYROXINE [Concomitant]
     Active Substance: LEVOTHYROXINE\LEVOTHYROXINE SODIUM
  5. RIVASTAGMINE [Concomitant]

REACTIONS (6)
  - Rosacea [Unknown]
  - Somnolence [Recovered/Resolved]
  - Dizziness [Recovered/Resolved]
  - Balance disorder [Recovered/Resolved]
  - Dysarthria [Recovered/Resolved]
  - Confusional state [Recovered/Resolved]

NARRATIVE: CASE EVENT DATE: 20240101
